FAERS Safety Report 8539025-3 (Version None)
Quarter: 2012Q3

REPORT INFORMATION
  Report Type: 
  Country: None (occurrence: None)
  Receive Date: 20120726
  Receipt Date: 20120723
  Transmission Date: 20120928
  Serious: Yes (Other)
  Sender: FDA-Public Use
  Company Number: PHFR2012GB004131

PATIENT
  Age: 50 Year
  Sex: Male

DRUGS (3)
  1. TEGRETOL [Suspect]
     Indication: EPILEPSY
     Dosage: 200 MG, UNK
     Dates: start: 20120101
  2. TEGRETOL [Suspect]
     Dosage: 400 MG, BID
     Dates: start: 20120301
  3. KEPPRA [Concomitant]

REACTIONS (1)
  - FUNGAL INFECTION [None]
